FAERS Safety Report 10222614 (Version 1)
Quarter: 2014Q2

REPORT INFORMATION
  Report Type: Spontaneous
  Country: IT (occurrence: IT)
  Receive Date: 20140606
  Receipt Date: 20140606
  Transmission Date: 20141212
  Serious: Yes (Life-Threatening)
  Sender: FDA-Public Use
  Company Number: IT-WATSON-2013-25244

PATIENT
  Age: 79 Year
  Sex: Female

DRUGS (5)
  1. TAVOR (PFIZER ITALIA SRL) [Suspect]
     Indication: SUICIDE ATTEMPT
     Dosage: 20 POSOLOGIC UNITS/TOTAL
     Route: 048
     Dates: start: 20130623, end: 20130623
  2. LEXOTAN [Suspect]
     Indication: SUICIDE ATTEMPT
     Dosage: 7 POSOLOGIC UNITS/TOTAL
     Route: 048
     Dates: start: 20130623, end: 20130623
  3. CITALOPRAM [Suspect]
     Indication: SUICIDE ATTEMPT
     Dosage: 420 MG, TOTAL
     Route: 048
     Dates: start: 20130623, end: 20130623
  4. IBUPROFEN [Suspect]
     Indication: SUICIDE ATTEMPT
     Dosage: 4800 MG, DAILY
     Route: 048
     Dates: start: 20130623, end: 20130623
  5. DIAZEPAM (UNKNOWN) [Suspect]
     Dosage: 150 MG, DAILY
     Route: 048
     Dates: start: 20130623, end: 20130623

REACTIONS (5)
  - Suicide attempt [Recovered/Resolved]
  - Coma [Recovered/Resolved]
  - Electrocardiogram QT prolonged [Recovered/Resolved]
  - Sopor [Recovered/Resolved]
  - Drug abuse [Recovered/Resolved]
